FAERS Safety Report 8814677 (Version 1)
Quarter: 2012Q4

REPORT INFORMATION
  Report Type: 
  Country: CN (occurrence: CN)
  Receive Date: 20120928
  Receipt Date: 20120928
  Transmission Date: 20130627
  Serious: Yes (Hospitalization)
  Sender: FDA-Public Use
  Company Number: CN-SANOFI-AVENTIS-2012SA069656

PATIENT
  Age: 70 Year
  Sex: Female
  Weight: 64 kg

DRUGS (13)
  1. PLAVIX [Suspect]
     Indication: ACUTE MYOCARDIAL INFARCTION
     Route: 048
     Dates: start: 20111017, end: 20111026
  2. PLAVIX [Suspect]
     Indication: ACUTE MYOCARDIAL INFARCTION
     Route: 048
     Dates: start: 20111017, end: 20111017
  3. CLEXANE [Suspect]
     Indication: ACUTE MYOCARDIAL INFARCTION
     Dosage: 60 mg q12h ih
     Route: 065
     Dates: start: 20111017
  4. BAYASPIRIN [Suspect]
     Indication: ACUTE MYOCARDIAL INFARCTION
     Route: 048
     Dates: start: 20111017, end: 20111017
  5. BAYASPIRIN [Suspect]
     Indication: ACUTE MYOCARDIAL INFARCTION
     Route: 048
     Dates: start: 20111018
  6. ATORVASTATIN CALCIUM [Suspect]
     Indication: HYPERCHOLESTEROLEMIA
     Route: 048
     Dates: start: 20111017
  7. ATORVASTATIN CALCIUM [Suspect]
     Indication: PLATELET AGGREGATION INHIBITION
     Route: 048
     Dates: start: 20111017
  8. BETALOC [Suspect]
     Indication: HEART RATE INCREASED
     Route: 048
     Dates: start: 20111017
  9. BETALOC [Suspect]
     Indication: CARDIAC DISORDER
     Route: 048
     Dates: start: 20111017
  10. CAPTOPRIL [Suspect]
     Indication: BLOOD PRESSURE
     Route: 048
     Dates: start: 20111017
  11. CAPTOPRIL [Suspect]
     Indication: CARDIAC DISORDER
     Route: 048
     Dates: start: 20111017
  12. GLYCERYL TRINITRATE [Suspect]
     Indication: CORONARY DISEASE
     Route: 065
     Dates: start: 20111017
  13. CEFUROXIME SODIUM [Concomitant]
     Indication: ANTI-INFECTIVE THERAPY
     Route: 041

REACTIONS (4)
  - Hepatic function abnormal [Recovered/Resolved with Sequelae]
  - Aspartate aminotransferase increased [Recovered/Resolved with Sequelae]
  - Alanine aminotransferase increased [Recovered/Resolved with Sequelae]
  - Blood creatinine increased [Unknown]
